FAERS Safety Report 26011602 (Version 1)
Quarter: 2025Q4

REPORT INFORMATION
  Report Type: Spontaneous
  Country: EU (occurrence: EU)
  Receive Date: 20251107
  Receipt Date: 20251107
  Transmission Date: 20260118
  Serious: Yes (Hospitalization, Other)
  Sender: ABBVIE
  Company Number: EU-ABBVIE-6527291

PATIENT
  Age: 57 Year
  Sex: Male

DRUGS (7)
  1. VENETOCLAX [Suspect]
     Active Substance: VENETOCLAX
     Indication: Acute biphenotypic leukaemia
     Dosage: DURATION TEXT: 1ST CYCLE
     Route: 048
     Dates: start: 20250521, end: 20250603
  2. VENETOCLAX [Suspect]
     Active Substance: VENETOCLAX
     Indication: Acute biphenotypic leukaemia
     Dosage: DURATION TEXT: 1ST CYCLE
     Route: 048
     Dates: start: 20250328, end: 20250417
  3. PIPERACILLIN AND TAZOBACTAM [Concomitant]
     Active Substance: PIPERACILLIN SODIUM\TAZOBACTAM SODIUM
     Indication: Product used for unknown indication
  4. AZACITIDINE [Concomitant]
     Active Substance: AZACITIDINE
     Indication: Acute biphenotypic leukaemia
     Dosage: DURATION TEXT: 2ND CYCLE
     Dates: start: 20250328, end: 20250417
  5. AZACITIDINE [Concomitant]
     Active Substance: AZACITIDINE
     Indication: Acute biphenotypic leukaemia
     Dosage: DURATION TEXT: 2ND CYCLE
     Dates: start: 20250521, end: 20250603
  6. GRANULOCYTE COLONY-STIMULATING FACTOR NOS [Concomitant]
     Active Substance: GRANULOCYTE COLONY-STIMULATING FACTOR NOS
     Indication: Product used for unknown indication
  7. CASPOFUNGIN [Concomitant]
     Active Substance: CASPOFUNGIN
     Indication: Product used for unknown indication
     Dosage: DURATION TEXT: 1 CYCLE

REACTIONS (4)
  - Lower respiratory tract infection [Unknown]
  - Tracheal fistula [Recovered/Resolved]
  - Adverse drug reaction [Recovering/Resolving]
  - Inflammatory marker increased [Unknown]

NARRATIVE: CASE EVENT DATE: 20250101
